FAERS Safety Report 18642924 (Version 1)
Quarter: 2020Q4

REPORT INFORMATION
  Report Type: Spontaneous
  Country: US (occurrence: US)
  Receive Date: 20201218
  Receipt Date: 20201218
  Transmission Date: 20210114
  Serious: No
  Sender: FDA-Public Use
  Company Number: None

PATIENT
  Age: 73 Year
  Sex: Male

DRUGS (1)
  1. ERLEADA [Suspect]
     Active Substance: APALUTAMIDE
     Route: 048
     Dates: start: 202010, end: 202012

REACTIONS (4)
  - Vision blurred [None]
  - Balance disorder [None]
  - Hot flush [None]
  - Rash [None]

NARRATIVE: CASE EVENT DATE: 20201101
